FAERS Safety Report 13361461 (Version 1)
Quarter: 2017Q1

REPORT INFORMATION
  Report Type: Spontaneous
  Country: TW (occurrence: TW)
  Receive Date: 20170323
  Receipt Date: 20170323
  Transmission Date: 20170429
  Serious: Yes (Death, Other)
  Sender: FDA-Public Use
  Company Number: TW-BRISTOL-MYERS SQUIBB COMPANY-BMS-2017-024761

PATIENT
  Age: 57 Year
  Sex: Male

DRUGS (2)
  1. NIVOLUMAB [Suspect]
     Active Substance: NIVOLUMAB
     Indication: THYMOMA MALIGNANT
     Dosage: 3 MG/KG, Q3WK
     Route: 065
     Dates: start: 201502
  2. IPILIMUMAB [Suspect]
     Active Substance: IPILIMUMAB
     Indication: THYMOMA MALIGNANT
     Dosage: 1 MG/KG, Q3WK
     Route: 065
     Dates: start: 201502

REACTIONS (3)
  - Product use issue [Unknown]
  - Pneumonitis [Fatal]
  - Rash erythematous [Unknown]
